FAERS Safety Report 6315729-8 (Version None)
Quarter: 2009Q3

REPORT INFORMATION
  Report Type: 
  Country: None (occurrence: None)
  Receive Date: 20090818
  Receipt Date: 20090812
  Transmission Date: 20100115
  Serious: Yes (Hospitalization, Disabling)
  Sender: FDA-Public Use
  Company Number: 2009AL005311

PATIENT
  Age: 52 Year
  Sex: Female

DRUGS (4)
  1. CLONIDINE HCL [Suspect]
     Indication: HYPERTENSION
     Dosage: 0.3 MG; TID; PO
     Route: 048
     Dates: start: 19930101
  2. AMLODIPINE [Concomitant]
  3. LISINOPRIL [Concomitant]
  4. TRIAMTERENE AND HYDROCHLOROTHIAZIDE [Concomitant]

REACTIONS (8)
  - AMNESIA [None]
  - DIZZINESS [None]
  - FEELING ABNORMAL [None]
  - HYPOTENSION [None]
  - IMPAIRED WORK ABILITY [None]
  - NAUSEA [None]
  - TACHYCARDIA [None]
  - WITHDRAWAL HYPERTENSION [None]
